FAERS Safety Report 9741685 (Version 1)
Quarter: 2013Q4

REPORT INFORMATION
  Report Type: Spontaneous
  Country: FR (occurrence: FR)
  Receive Date: 20131210
  Receipt Date: 20131210
  Transmission Date: 20140711
  Serious: Yes (Life-Threatening, Hospitalization)
  Sender: FDA-Public Use
  Company Number: FR-JNJFOC-20131203186

PATIENT
  Age: 46 Year
  Sex: Male

DRUGS (6)
  1. PREZISTA [Suspect]
     Indication: HIV TEST POSITIVE
     Route: 048
     Dates: start: 20131011, end: 20131117
  2. TRUVADA [Suspect]
     Indication: HIV TEST POSITIVE
     Route: 048
     Dates: start: 20131011, end: 20131115
  3. NORVIR [Suspect]
     Indication: HIV TEST POSITIVE
     Route: 048
     Dates: start: 20131011, end: 20131117
  4. OFLOXACINE [Suspect]
     Indication: PROSTATITIS
     Route: 048
     Dates: start: 20131104, end: 20131112
  5. EMTRIVA [Suspect]
     Indication: PRODUCT USED FOR UNKNOWN INDICATION
     Route: 065
  6. EMTRIVA [Suspect]
     Indication: PRODUCT USED FOR UNKNOWN INDICATION
     Route: 065
     Dates: end: 20131115

REACTIONS (6)
  - Rash [Not Recovered/Not Resolved]
  - Rash maculo-papular [Not Recovered/Not Resolved]
  - Pruritus [Not Recovered/Not Resolved]
  - Pyrexia [Not Recovered/Not Resolved]
  - Cholestasis [Not Recovered/Not Resolved]
  - Hepatocellular injury [Not Recovered/Not Resolved]
